FAERS Safety Report 8848849 (Version 1)
Quarter: 2012Q4

REPORT INFORMATION
  Report Type: Spontaneous
  Country: US (occurrence: None)
  Receive Date: 20121015
  Receipt Date: 20121015
  Transmission Date: 20130627
  Serious: Yes (Hospitalization)
  Sender: FDA-Public Use
  Company Number: ACO_32357_2012

PATIENT
  Age: 59 Year
  Sex: Female

DRUGS (4)
  1. AMPYRA [Suspect]
     Indication: GAIT DISTURBANCE
     Dates: start: 201009, end: 2011
  2. AMPYRA [Suspect]
     Indication: GAIT DISTURBANCE
     Route: 048
     Dates: start: 2011
  3. IMURAN (AZATHIOPRINE) [Concomitant]
  4. VITAMIN D (ERGOCALCIFEROL) [Concomitant]

REACTIONS (4)
  - Muscular weakness [None]
  - Crying [None]
  - Inappropriate schedule of drug administration [None]
  - Therapeutic response unexpected [None]
